FAERS Safety Report 6919150-0 (Version None)
Quarter: 2010Q3

REPORT INFORMATION
  Report Type: 
  Country: None (occurrence: None)
  Receive Date: 20100811
  Receipt Date: 20100729
  Transmission Date: 20110219
  Serious: Yes (Death)
  Sender: FDA-Public Use
  Company Number: CO-ROCHE-718001

PATIENT
  Sex: Male

DRUGS (6)
  1. CELLCEPT [Suspect]
     Indication: LIVER TRANSPLANT
     Route: 048
     Dates: start: 20090511, end: 20100628
  2. PREDNISOLONE [Concomitant]
     Indication: LIVER TRANSPLANT
     Route: 048
  3. ENALAPRIL [Concomitant]
     Dosage: FREQUENCY: DAILY
     Route: 048
  4. FUROSEMIDE [Concomitant]
     Route: 048
  5. SPIRONOLACTONE [Concomitant]
     Route: 048
  6. METFORMIN HCL [Concomitant]
     Indication: DIABETES MELLITUS
     Route: 048

REACTIONS (1)
  - CARDIO-RESPIRATORY ARREST [None]
